FAERS Safety Report 13865558 (Version 1)
Quarter: 2017Q3

REPORT INFORMATION
  Report Type: Spontaneous
  Country: NZ (occurrence: NZ)
  Receive Date: 20170814
  Receipt Date: 20170814
  Transmission Date: 20171127
  Serious: Yes (Death)
  Sender: FDA-Public Use
  Company Number: NZ-PFIZER INC-2016472484

PATIENT
  Age: 85 Year
  Sex: Male

DRUGS (3)
  1. COLCHICINE. [Concomitant]
     Active Substance: COLCHICINE
     Dosage: 5 MG, 1X/DAY
     Route: 048
  2. CILAZAPRIL [Concomitant]
     Active Substance: CILAZAPRIL ANHYDROUS
     Dosage: 5 MG, 1X/DAY
     Route: 048
  3. ZARATOR [Suspect]
     Active Substance: ATORVASTATIN CALCIUM
     Dosage: 10 MG, 1X/DAY

REACTIONS (7)
  - Discomfort [Unknown]
  - Asthenia [Unknown]
  - Death [Fatal]
  - Arthralgia [Unknown]
  - Mobility decreased [Unknown]
  - Peripheral swelling [Unknown]
  - Muscle tightness [Unknown]
